FAERS Safety Report 23956642 (Version 1)
Quarter: 2024Q2

REPORT INFORMATION
  Report Type: Spontaneous
  Country: US (occurrence: US)
  Receive Date: 20240610
  Receipt Date: 20240610
  Transmission Date: 20240716
  Serious: Yes (Other)
  Sender: FDA-Public Use
  Company Number: US-JNJFOC-20240588067

PATIENT
  Sex: Female

DRUGS (1)
  1. AVOBENZONE\HOMOSALATE\OCTISALATE\OCTOCRYLENE [Suspect]
     Active Substance: AVOBENZONE\HOMOSALATE\OCTISALATE\OCTOCRYLENE
     Indication: Product used for unknown indication
     Dosage: PUT EVERY DAY FOR THREE MONTHS OUT OF THE YEAR, EVERY YEAR, FOR THE FIRST FOURTEEN YEARS OF LIFE
     Route: 061

REACTIONS (1)
  - Acute kidney injury [Unknown]
